FAERS Safety Report 9897241 (Version 2)
Quarter: 2014Q1

REPORT INFORMATION
  Report Type: Report from Study
  Country: US (occurrence: US)
  Receive Date: 20140214
  Receipt Date: 20140225
  Transmission Date: 20141002
  Serious: Yes (Other)
  Sender: FDA-Public Use
  Company Number: US-ROCHE-1346852

PATIENT
  Age: 63 Year
  Sex: Female
  Weight: 76.4 kg

DRUGS (2)
  1. BEVACIZUMAB [Suspect]
     Indication: GLIOBLASTOMA
     Dosage: OVER 30 MINUTES.LAST ADMINISTERED DATE: 22/JAN/2014
     Route: 042
     Dates: start: 20130306, end: 20140211
  2. BLINDED DASATINIB [Suspect]
     Indication: GLIOBLASTOMA
     Dosage: LAST ADMINISTERD DOSE: 01/FEB/2014
     Route: 048
     Dates: start: 20130306, end: 20140211

REACTIONS (2)
  - Cerebrovascular accident [Recovered/Resolved]
  - Optic nerve disorder [Unknown]
